FAERS Safety Report 7365129-7 (Version None)
Quarter: 2011Q1

REPORT INFORMATION
  Report Type: 
  Country: None (occurrence: None)
  Receive Date: 20110321
  Receipt Date: 20110316
  Transmission Date: 20110831
  Serious: Yes (Other)
  Sender: FDA-Public Use
  Company Number: US-PFIZER INC-2011059206

PATIENT

DRUGS (1)
  1. CHANTIX [Suspect]
     Dosage: UNK

REACTIONS (6)
  - ANXIETY [None]
  - AGITATION [None]
  - DEPRESSION [None]
  - PARANOIA [None]
  - HOSTILITY [None]
  - ABNORMAL BEHAVIOUR [None]
